FAERS Safety Report 19661291 (Version 1)
Quarter: 2021Q3

REPORT INFORMATION
  Report Type: Spontaneous
  Country: US (occurrence: US)
  Receive Date: 20210805
  Receipt Date: 20210805
  Transmission Date: 20211014
  Serious: Yes (Hospitalization, Disabling)
  Sender: FDA-Public Use
  Company Number: None

PATIENT
  Age: 61 Year
  Sex: Female

DRUGS (27)
  1. METHOTREXARE [Concomitant]
  2. ASPIRIN. [Concomitant]
     Active Substance: ASPIRIN
  3. PIMECROLIMUS 1% CREAM [Concomitant]
  4. CARVEDILOL. [Concomitant]
     Active Substance: CARVEDILOL
  5. HYDRALAZINE [Concomitant]
     Active Substance: HYDRALAZINE HYDROCHLORIDE
  6. FOLIC ACID. [Concomitant]
     Active Substance: FOLIC ACID
  7. METOPROLOL SUCCINATE. [Concomitant]
     Active Substance: METOPROLOL SUCCINATE
  8. OMEPRAZOLE. [Concomitant]
     Active Substance: OMEPRAZOLE
  9. AMLODIPINE [Concomitant]
     Active Substance: AMLODIPINE BESYLATE
  10. HYDROCHLOROTHIAZIDE. [Concomitant]
     Active Substance: HYDROCHLOROTHIAZIDE
  11. POTASSIUM CHLORIDE. [Concomitant]
     Active Substance: POTASSIUM CHLORIDE
  12. NITROGLYCERIN. [Concomitant]
     Active Substance: NITROGLYCERIN
  13. INSULIN REGULAR [Concomitant]
     Active Substance: INSULIN NOS
  14. EDARBYCLOR [Concomitant]
     Active Substance: AZILSARTAN KAMEDOXOMIL\CHLORTHALIDONE
  15. HYROXYZINE [Concomitant]
  16. TOPICAL OINTMENT [Concomitant]
  17. CALCIPOTRIENE 0.005% TOPICAL CREAN [Concomitant]
  18. TRIAMCINOLONE 01% TOPICAL CREAM [Concomitant]
  19. HUMIRA [Suspect]
     Active Substance: ADALIMUMAB
     Indication: PSORIASIS
     Route: 058
     Dates: start: 20210226, end: 20210531
  20. LISINOPRIL. [Concomitant]
     Active Substance: LISINOPRIL
  21. CLOPIDOGREL [Concomitant]
     Active Substance: CLOPIDOGREL BISULFATE
  22. CLOBETASOL [Concomitant]
     Active Substance: CLOBETASOL
  23. ALBUTEROL. [Concomitant]
     Active Substance: ALBUTEROL
  24. NIFEDIPINE. [Suspect]
     Active Substance: NIFEDIPINE
  25. GABAPENTIN. [Concomitant]
     Active Substance: GABAPENTIN
  26. FUROSEMIDE. [Concomitant]
     Active Substance: FUROSEMIDE
  27. INSULIN GLARGINE [Concomitant]
     Active Substance: INSULIN GLARGINE

REACTIONS (2)
  - Cardiac failure congestive [None]
  - Myocardial infarction [None]

NARRATIVE: CASE EVENT DATE: 202105
